FAERS Safety Report 9155068 (Version 1)
Quarter: 2013Q1

REPORT INFORMATION
  Report Type: Spontaneous
  Country: IN (occurrence: None)
  Receive Date: 20130205
  Receipt Date: 20130205
  Transmission Date: 20140127
  Serious: Yes (Life-Threatening, Hospitalization, Other)
  Sender: FDA-Public Use
  Company Number: 2013P1001185

PATIENT
  Age: 48 Year
  Sex: Male

DRUGS (6)
  1. RIFAMPIN [Suspect]
     Indication: PERITONEAL TUBERCULOSIS
  2. AMLODIPINE [Concomitant]
  3. LOSARTAN [Concomitant]
  4. ISONIAZID [Concomitant]
  5. ETHAMBUTOL [Concomitant]
  6. PYRAZINAMIDE [Concomitant]

REACTIONS (3)
  - Accelerated hypertension [None]
  - Acute left ventricular failure [None]
  - Hypertension [None]
